FAERS Safety Report 6415355-6 (Version None)
Quarter: 2009Q4

REPORT INFORMATION
  Report Type: 
  Country: None (occurrence: None)
  Receive Date: 20091022
  Receipt Date: 20091022
  Transmission Date: 20100525
  Serious: Yes (Hospitalization)
  Sender: FDA-Public Use
  Company Number: None

PATIENT
  Age: 77 Year
  Sex: Female
  Weight: 93.2 kg

DRUGS (8)
  1. TEMODAR [Suspect]
     Indication: GLIOBLASTOMA
     Dosage: 155MG PO QD FOR 42 DAYS
     Route: 048
  2. DEXAMETHASONE [Concomitant]
  3. PEPCID [Concomitant]
  4. KEPPRA [Concomitant]
  5. SYNTHROID [Concomitant]
  6. ZOCOR [Concomitant]
  7. VASOTEC [Concomitant]
  8. TYLENOL [Concomitant]

REACTIONS (2)
  - ASTHENIA [None]
  - REFUSAL OF TREATMENT BY PATIENT [None]
